FAERS Safety Report 5749132-6 (Version None)
Quarter: 2008Q2

REPORT INFORMATION
  Report Type: 
  Country: None (occurrence: None)
  Receive Date: 20080527
  Receipt Date: 20080512
  Transmission Date: 20081010
  Serious: Yes (Other)
  Sender: FDA-Public Use
  Company Number: PHHY2008JP03768

PATIENT
  Sex: Male

DRUGS (11)
  1. ZOMETA [Suspect]
     Indication: METASTASES TO BONE
     Dosage: 4 MG, UNK
     Route: 042
     Dates: start: 20070507, end: 20080229
  2. CHEMOTHERAPEUTICS [Concomitant]
  3. STEROIDS NOS [Concomitant]
  4. ESTRACYT [Concomitant]
     Indication: PROSTATE CANCER
     Dosage: 626.8 MG, UNK
     Route: 048
     Dates: start: 20070409
  5. ASPIRIN [Concomitant]
     Indication: PROSTATE CANCER
     Dosage: 100 MG, UNK
     Route: 048
     Dates: start: 20070409
  6. LASIX [Concomitant]
     Indication: PROSTATE CANCER
     Dosage: 40 MG, UNK
     Route: 048
     Dates: start: 20070409
  7. FAMOTIDINE [Concomitant]
     Indication: PROSTATE CANCER
     Dosage: 40 MG, UNK
     Route: 048
     Dates: start: 20070409
  8. HYPEN [Concomitant]
     Indication: PROSTATE CANCER
     Dosage: 400 MG, UNK
     Route: 048
     Dates: start: 20070409
  9. DECADRON [Concomitant]
     Indication: PROSTATE CANCER
     Dosage: 2 MG, UNK
     Route: 048
     Dates: start: 20070409
  10. CALCIUM LACTATE [Concomitant]
     Indication: PROSTATE CANCER
     Dosage: 4 G, UNK
     Route: 048
     Dates: start: 20070409
  11. HORMONES NOS [Concomitant]

REACTIONS (1)
  - OSTEOMYELITIS [None]
